FAERS Safety Report 6576841-1 (Version None)
Quarter: 2010Q1

REPORT INFORMATION
  Report Type: 
  Country: None (occurrence: None)
  Receive Date: 20100210
  Receipt Date: 20100208
  Transmission Date: 20100710
  Serious: Yes (Other)
  Sender: FDA-Public Use
  Company Number: B0623218A

PATIENT
  Age: 62 Year
  Sex: Female

DRUGS (1)
  1. CLOBETASOL PROPIONATE [Suspect]
     Indication: VULVOVAGINITIS
     Dosage: 200G MONTHLY
     Route: 061

REACTIONS (9)
  - BLOOD CORTISOL DECREASED [None]
  - CONDITION AGGRAVATED [None]
  - DRUG ABUSE [None]
  - ECCHYMOSIS [None]
  - ERYTHEMA [None]
  - HYPOTHALAMO-PITUITARY DISORDER [None]
  - MALAISE [None]
  - OVERDOSE [None]
  - VULVOVAGINAL ERYTHEMA [None]
